FAERS Safety Report 8162764-3 (Version None)
Quarter: 2012Q1

REPORT INFORMATION
  Report Type: 
  Country: None (occurrence: None)
  Receive Date: 20120224
  Receipt Date: 20120223
  Transmission Date: 20120608
  Serious: Yes (Hospitalization)
  Sender: FDA-Public Use
  Company Number: IT-BAYER-2012-018136

PATIENT
  Age: 75 Year
  Sex: Male

DRUGS (11)
  1. COUMADIN [Suspect]
     Indication: ATRIAL FIBRILLATION
     Dosage: 1 DF, UNK
     Route: 048
     Dates: start: 20080101, end: 20120208
  2. FUROSEMIDE [Concomitant]
     Dosage: DAILY DOSE 25 MG
     Route: 048
  3. SIMVASTATIN [Concomitant]
     Dosage: DAILY DOSE 10 MG
  4. OMEPRAZOLE [Concomitant]
     Dosage: DAILY DOSE 20 MG
     Route: 048
  5. METOPROLOL TARTRATE [Concomitant]
     Dosage: DAILY DOSE 100 MG
  6. POTASSIUM CHLORIDE [Concomitant]
     Dosage: DAILY DOSE 1200 MG
     Route: 048
  7. NITROGLYCERIN [Concomitant]
     Dosage: DAILY DOSE 10 MG
  8. CLOPIDOGREL [Suspect]
     Indication: CORONARY ANGIOPLASTY
     Dosage: DAILY DOSE 75 MG
     Route: 048
     Dates: start: 20120101
  9. ASPIRIN [Suspect]
     Indication: CORONARY ANGIOPLASTY
     Dosage: 100 MG, QD
     Route: 048
     Dates: start: 20120101
  10. RAMIPRIL [Concomitant]
     Dosage: DAILY DOSE 5 MG
     Route: 048
  11. DIGOXIN [Concomitant]
     Dosage: DAILY DOSE .12 MG

REACTIONS (2)
  - ANAEMIA [None]
  - EPISTAXIS [None]
